FAERS Safety Report 15206742 (Version 3)
Quarter: 2018Q3

REPORT INFORMATION
  Report Type: Spontaneous
  Country: US (occurrence: US)
  Receive Date: 20180727
  Receipt Date: 20180731
  Transmission Date: 20181010
  Serious: Yes (Hospitalization)
  Sender: FDA-Public Use
  Company Number: US-ROCHE-2160109

PATIENT
  Age: 62 Year
  Sex: Male
  Weight: 74.46 kg

DRUGS (12)
  1. OXYCODONE [Concomitant]
     Active Substance: OXYCODONE
     Indication: BREAKTHROUGH PAIN
     Dosage: ONGOING YES: 1?2 TABS, EVERY 6 HRS AS NEEDED
     Route: 065
  2. KLONOPIN [Suspect]
     Active Substance: CLONAZEPAM
     Indication: STRESS
  3. METHADONE [Concomitant]
     Active Substance: METHADONE HYDROCHLORIDE
     Indication: BACK PAIN
     Route: 065
  4. KLONOPIN [Suspect]
     Active Substance: CLONAZEPAM
     Indication: ANXIETY
  5. KLONOPIN [Suspect]
     Active Substance: CLONAZEPAM
     Indication: RESTLESS LEGS SYNDROME
  6. ELIQUIS [Concomitant]
     Active Substance: APIXABAN
     Indication: ANTICOAGULANT THERAPY
     Route: 065
  7. KLONOPIN [Suspect]
     Active Substance: CLONAZEPAM
     Indication: MUSCLE SPASMS
  8. KLONOPIN [Suspect]
     Active Substance: CLONAZEPAM
     Indication: TREMOR
  9. GABAPENTIN. [Concomitant]
     Active Substance: GABAPENTIN
     Indication: PAIN IN EXTREMITY
  10. KLONOPIN [Suspect]
     Active Substance: CLONAZEPAM
     Indication: SLEEP DISORDER
     Dosage: 2 TO 4 MG A DAY AS NEEDED, FOR OVER 20 YEARS
     Route: 065
     Dates: start: 2015
  11. KLONOPIN [Suspect]
     Active Substance: CLONAZEPAM
     Indication: TREMOR
  12. GABAPENTIN. [Concomitant]
     Active Substance: GABAPENTIN
     Indication: HYPOAESTHESIA

REACTIONS (6)
  - Abdominal discomfort [Recovered/Resolved]
  - Nightmare [Recovered/Resolved]
  - Anxiety [Recovering/Resolving]
  - Tremor [Recovered/Resolved]
  - Hallucination [Recovered/Resolved]
  - Atrial fibrillation [Unknown]

NARRATIVE: CASE EVENT DATE: 2015
